FAERS Safety Report 16050268 (Version 3)
Quarter: 2022Q4

REPORT INFORMATION
  Report Type: Spontaneous
  Country: FR (occurrence: FR)
  Receive Date: 20190308
  Receipt Date: 20221022
  Transmission Date: 20230113
  Serious: Yes (Death, Life-Threatening, Other)
  Sender: FDA-Public Use
  Company Number: FR-AUROBINDO-AUR-APL-2017-36721

PATIENT
  Age: 68 Year
  Sex: Male

DRUGS (21)
  1. PREDNISOLONE [Suspect]
     Active Substance: PREDNISOLONE
     Indication: Immunosuppressant drug therapy
     Dosage: UNK
     Route: 065
  2. PREDNISOLONE [Suspect]
     Active Substance: PREDNISOLONE
     Indication: Heart transplant
  3. FENOFIBRATE [Suspect]
     Active Substance: FENOFIBRATE
     Indication: Hypertriglyceridaemia
     Dosage: UNK
     Route: 065
  4. MYCOPHENOLATE MOFETIL [Suspect]
     Active Substance: MYCOPHENOLATE MOFETIL
     Indication: Immunosuppressant drug therapy
     Dosage: UNK
     Route: 065
  5. MYCOPHENOLATE MOFETIL [Suspect]
     Active Substance: MYCOPHENOLATE MOFETIL
     Indication: Heart transplant
  6. TACROLIMUS [Suspect]
     Active Substance: TACROLIMUS
     Indication: Immunosuppressant drug therapy
     Dosage: 1.5 MG, TWICE DAILY (2 PER DAY)
     Route: 065
     Dates: start: 1995
  7. TACROLIMUS [Suspect]
     Active Substance: TACROLIMUS
     Indication: Immunosuppression
  8. TACROLIMUS [Suspect]
     Active Substance: TACROLIMUS
     Indication: Heart transplant
  9. GEMCITABINE [Suspect]
     Active Substance: GEMCITABINE
     Indication: Cutaneous T-cell lymphoma
     Dosage: 1000 MILLIGRAM/SQ. METER(1000 MG/M2, CYCLIC (AT A RATE OF ONE INFUSION PER WEEK IN THREE OF EVERY FO
     Route: 065
  10. GEMCITABINE [Suspect]
     Active Substance: GEMCITABINE
     Indication: Cutaneous T-cell lymphoma
     Dosage: UNK
     Route: 065
  11. LEVOTHYROXINE SODIUM [Suspect]
     Active Substance: LEVOTHYROXINE SODIUM
     Indication: Hypothyroidism
     Dosage: UNK
     Route: 065
  12. TARGRETIN [Suspect]
     Active Substance: BEXAROTENE
     Indication: Product used for unknown indication
     Dosage: 300 MILLIGRAM/SQ. METER, UNK
     Route: 065
  13. BEXAROTENE [Suspect]
     Active Substance: BEXAROTENE
     Indication: Cutaneous T-cell lymphoma
     Dosage: 300 MILLIGRAM/SQ. METER
     Route: 065
  14. BEXAROTENE [Suspect]
     Active Substance: BEXAROTENE
     Indication: Cutaneous T-cell lymphoma
     Dosage: 150 MILLIGRAM/SQ. METER(150 MG/M2,UNK)
     Route: 065
  15. BEXAROTENE [Concomitant]
     Active Substance: BEXAROTENE
     Indication: Cutaneous T-cell lymphoma
     Dosage: 150 MILLIGRAM/SQ. METER
     Route: 065
  16. BEXAROTENE [Concomitant]
     Active Substance: BEXAROTENE
     Dosage: 300 MILLIGRAM/SQ. METER
     Route: 065
  17. MECHLORETHAMINE [Concomitant]
     Active Substance: MECHLORETHAMINE
     Indication: Cutaneous T-cell lymphoma
     Dosage: UNK
     Route: 065
  18. MECHLORETHAMINE [Concomitant]
     Active Substance: MECHLORETHAMINE
     Indication: Cutaneous T-cell lymphoma
  19. PLAVIX [Concomitant]
     Active Substance: CLOPIDOGREL BISULFATE
     Indication: Product used for unknown indication
     Dosage: UNK
     Route: 065
  20. Loxen [Concomitant]
     Indication: Product used for unknown indication
     Dosage: UNK
     Route: 065
  21. ESOMEPRAZOLE [Concomitant]
     Active Substance: ESOMEPRAZOLE
     Indication: Product used for unknown indication
     Dosage: UNK
     Route: 065

REACTIONS (13)
  - Staphylococcal bacteraemia [Fatal]
  - Septic shock [Fatal]
  - Cutaneous T-cell lymphoma [Recovering/Resolving]
  - Dermatitis psoriasiform [Recovering/Resolving]
  - Palmoplantar keratoderma [Recovering/Resolving]
  - Skin plaque [Recovering/Resolving]
  - Chronic kidney disease [Not Recovered/Not Resolved]
  - Weight decreased [Unknown]
  - Alopecia [Recovering/Resolving]
  - Drug ineffective [Unknown]
  - Hypertriglyceridaemia [Not Recovered/Not Resolved]
  - Thyroid stimulating hormone deficiency [Recovered/Resolved]
  - Eczema [Unknown]

NARRATIVE: CASE EVENT DATE: 20140801
